FAERS Safety Report 8502045-9 (Version None)
Quarter: 2012Q2

REPORT INFORMATION
  Report Type: 
  Country: None (occurrence: None)
  Receive Date: 20120405
  Receipt Date: 20100824
  Transmission Date: 20120825
  Serious: Yes (Hospitalization)
  Sender: FDA-Public Use
  Company Number: PHHY2010US48418

PATIENT
  Age: 59 Year
  Sex: Female

DRUGS (4)
  1. ASPIRIN [Concomitant]
  2. FOLIC ACID [Concomitant]
  3. RECLAST [Suspect]
     Indication: OSTEOPOROSIS
     Dosage: 5 MG PER YEAR, INTRAVENOUS
     Route: 042
     Dates: start: 20100715
  4. LASIX [Concomitant]

REACTIONS (22)
  - HYPERHIDROSIS [None]
  - DYSPNOEA [None]
  - WHITE BLOOD CELL COUNT INCREASED [None]
  - MEAN CELL HAEMOGLOBIN [None]
  - NAUSEA [None]
  - DIARRHOEA [None]
  - BLOOD GLUCOSE INCREASED [None]
  - CHILLS [None]
  - BLOOD CALCIUM DECREASED [None]
  - MEAN CELL VOLUME INCREASED [None]
  - NEUTROPHIL COUNT INCREASED [None]
  - MONOCYTE COUNT INCREASED [None]
  - MYALGIA [None]
  - PARAESTHESIA [None]
  - ANION GAP INCREASED [None]
  - VOMITING [None]
  - COUGH [None]
  - BLOOD POTASSIUM DECREASED [None]
  - LYMPHOCYTE COUNT DECREASED [None]
  - MUSCLE SPASMS [None]
  - TETANY [None]
  - JOINT LOCK [None]
